FAERS Safety Report 4979624-9 (Version None)
Quarter: 2006Q1

REPORT INFORMATION
  Report Type: 
  Country: None (occurrence: None)
  Receive Date: 20060223
  Receipt Date: 20050208
  Transmission Date: 20060701
  Serious: No
  Sender: FDA-Public Use
  Company Number: HQWYE269711FEB05

PATIENT
  Age: 43 Year
  Sex: Male
  Weight: 77.18 kg

DRUGS (5)
  1. EFFEXOR [Suspect]
     Indication: DEPRESSION
     Dosage: 75 MG 1X PER 1 DAY, ORAL;  75 MG 2X PER 1 DAY, ORAL
     Route: 048
     Dates: start: 20030501
  2. NYQUIL (DEXTROMETHORPHAN HYDROBROMIDE/DOXYLAMINE SUCCINATE/EPHEDRINE S [Suspect]
     Indication: INFLUENZA
     Dosage: 1OUNCE DAILY IN AM, 2 OUNCES DAILY IN PM
     Dates: start: 20050201, end: 20050207
  3. NYQUIL (DEXTROMETHORPHAN HYDROBROMIDE/DOXYLAMINE SUCCINATE/EPHEDRINE S [Suspect]
     Indication: NASOPHARYNGITIS
     Dosage: 1OUNCE DAILY IN AM, 2 OUNCES DAILY IN PM
     Dates: start: 20050201, end: 20050207
  4. LAMICTAL [Concomitant]
  5. CAFFEINE (CAFFEINE) [Concomitant]

REACTIONS (5)
  - AGITATION [None]
  - CONFUSIONAL STATE [None]
  - DRUG INTERACTION [None]
  - HYPOAESTHESIA [None]
  - MEMORY IMPAIRMENT [None]
